FAERS Safety Report 7647254-6 (Version None)
Quarter: 2011Q3

REPORT INFORMATION
  Report Type: 
  Country: None (occurrence: None)
  Receive Date: 20110801
  Receipt Date: 20110722
  Transmission Date: 20111222
  Serious: Yes (Other)
  Sender: FDA-Public Use
  Company Number: US-SANOFI-AVENTIS-2011SA044228

PATIENT
  Sex: Male
  Weight: 86 kg

DRUGS (3)
  1. LANTUS [Suspect]
     Dosage: DOSE:18 UNIT(S)
     Route: 058
     Dates: start: 20020101
  2. LANTUS [Suspect]
     Indication: TYPE 2 DIABETES MELLITUS
     Dosage: DOSE:18 UNIT(S)
     Route: 058
     Dates: start: 20020101
  3. OPTICLICK [Suspect]
     Indication: TYPE 2 DIABETES MELLITUS

REACTIONS (1)
  - SURGERY [None]
